FAERS Safety Report 16772011 (Version 1)
Quarter: 2019Q4

REPORT INFORMATION
  Report Type: Spontaneous
  Country: US (occurrence: US)
  Receive Date: 20190904
  Receipt Date: 20190904
  Transmission Date: 20200122
  Serious: No
  Sender: FDA-Public Use
  Company Number: None

PATIENT
  Age: 21 Year
  Sex: Female
  Weight: 58.5 kg

DRUGS (1)
  1. SUDAFED [Suspect]
     Active Substance: PSEUDOEPHEDRINE HYDROCHLORIDE
     Dosage: ?          OTHER FREQUENCY:EVERY 4-6 HOURS;?
     Route: 048

REACTIONS (1)
  - Blood pressure systolic increased [None]

NARRATIVE: CASE EVENT DATE: 20180911
